FAERS Safety Report 7585142-4 (Version None)
Quarter: 2011Q3

REPORT INFORMATION
  Report Type: 
  Country: None (occurrence: None)
  Receive Date: 20110701
  Receipt Date: 20110621
  Transmission Date: 20111222
  Serious: Yes (Hospitalization)
  Sender: FDA-Public Use
  Company Number: IT-BIOGENIDEC-2011BI023215

PATIENT
  Age: 54 Year
  Sex: Female

DRUGS (9)
  1. TYSABRI [Suspect]
     Indication: RELAPSING-REMITTING MULTIPLE SCLEROSIS
     Route: 042
     Dates: start: 20080820, end: 20110504
  2. ATORVASTATIN CALCIUM [Concomitant]
     Dates: start: 20050101, end: 20110617
  3. DEURSIL [Concomitant]
     Dates: start: 20000101, end: 20110617
  4. ATORVASTATIN CALCIUM [Concomitant]
  5. EUTIROX [Concomitant]
  6. CALCITRIOL [Concomitant]
     Dates: start: 19990101, end: 20110617
  7. EUTIROX [Concomitant]
     Dates: start: 19990101, end: 20110617
  8. CALCITRIOL [Concomitant]
  9. DEURSIL [Concomitant]

REACTIONS (1)
  - BREAST CANCER [None]
